FAERS Safety Report 21543634 (Version 1)
Quarter: 2022Q4

REPORT INFORMATION
  Report Type: Spontaneous
  Country: US (occurrence: US)
  Receive Date: 20221102
  Receipt Date: 20221102
  Transmission Date: 20230113
  Serious: No
  Sender: FDA-Public Use
  Company Number: US-ELI_LILLY_AND_COMPANY-US202211000145

PATIENT
  Age: 64 Year
  Sex: Female

DRUGS (3)
  1. TRULICITY [Suspect]
     Active Substance: DULAGLUTIDE
     Indication: Diabetes mellitus
     Dosage: 0.75 MG, UNKNOWN
     Route: 058
     Dates: start: 20221029
  2. TRULICITY [Suspect]
     Active Substance: DULAGLUTIDE
     Indication: Weight decreased
  3. METFORMIN [Concomitant]
     Active Substance: METFORMIN HYDROCHLORIDE
     Indication: Diabetes mellitus

REACTIONS (3)
  - Injection site rash [Recovering/Resolving]
  - Injection site pruritus [Recovering/Resolving]
  - Injection site urticaria [Recovering/Resolving]

NARRATIVE: CASE EVENT DATE: 20221029
